FAERS Safety Report 17372378 (Version 3)
Quarter: 2024Q4

REPORT INFORMATION
  Report Type: Spontaneous
  Country: PL (occurrence: PL)
  Receive Date: 20200205
  Receipt Date: 20241104
  Transmission Date: 20250115
  Serious: Yes (Hospitalization, Other)
  Sender: GLAXOSMITHKLINE
  Company Number: None

PATIENT

DRUGS (21)
  1. LITHIUM CARBONATE [Suspect]
     Active Substance: LITHIUM CARBONATE
     Indication: Bipolar disorder
     Dosage: 1000 MG
     Route: 065
  2. LITHIUM CARBONATE [Suspect]
     Active Substance: LITHIUM CARBONATE
     Indication: Schizoaffective disorder
  3. LAMOTRIGINE [Suspect]
     Active Substance: LAMOTRIGINE
     Indication: Bipolar disorder
     Dosage: 125 MG, QD
     Route: 065
  4. LAMOTRIGINE [Suspect]
     Active Substance: LAMOTRIGINE
     Indication: Schizoaffective disorder
     Dosage: 200 MG, QD
     Route: 065
  5. QUETIAPINE [Suspect]
     Active Substance: QUETIAPINE
     Indication: Product used for unknown indication
     Dosage: 325 MG, QD
     Route: 065
  6. QUETIAPINE [Suspect]
     Active Substance: QUETIAPINE
     Indication: Bipolar disorder
     Dosage: 600 MG, QD
     Route: 065
  7. QUETIAPINE [Suspect]
     Active Substance: QUETIAPINE
     Indication: Schizoaffective disorder
  8. ARIPIPRAZOLE [Suspect]
     Active Substance: ARIPIPRAZOLE
     Indication: Bipolar disorder
     Dosage: 10 MG, QD
     Route: 065
  9. ARIPIPRAZOLE [Suspect]
     Active Substance: ARIPIPRAZOLE
     Indication: Schizoaffective disorder
     Dosage: 15 MG, QD
     Route: 065
  10. CLOZAPINE [Suspect]
     Active Substance: CLOZAPINE
     Indication: Bipolar disorder
     Dosage: 400 MG, QD
     Route: 065
  11. CLOZAPINE [Suspect]
     Active Substance: CLOZAPINE
     Indication: Schizoaffective disorder
  12. AMISULPRIDE [Suspect]
     Active Substance: AMISULPRIDE
     Indication: Bipolar disorder
     Dosage: 400 MG, QD
     Route: 065
  13. AMISULPRIDE [Suspect]
     Active Substance: AMISULPRIDE
     Indication: Schizoaffective disorder
  14. SERTRALINE [Suspect]
     Active Substance: SERTRALINE HYDROCHLORIDE
     Indication: Bipolar disorder
     Dosage: UNK UNK, QD (UP TO 100 MG/DAY)
     Route: 065
  15. SERTRALINE [Suspect]
     Active Substance: SERTRALINE HYDROCHLORIDE
     Indication: Schizoaffective disorder
  16. VENLAFAXINE [Suspect]
     Active Substance: VENLAFAXINE HYDROCHLORIDE
     Indication: Antidepressant therapy
     Dosage: UNK UNK, QD (UP TO 150 MG/DAY)
     Route: 065
  17. VENLAFAXINE [Suspect]
     Active Substance: VENLAFAXINE HYDROCHLORIDE
     Indication: Bipolar disorder
  18. VENLAFAXINE [Suspect]
     Active Substance: VENLAFAXINE HYDROCHLORIDE
     Indication: Schizoaffective disorder
  19. HALOPERIDOL [Suspect]
     Active Substance: HALOPERIDOL
     Indication: Product used for unknown indication
     Dosage: 2 MG, QD
     Route: 065
  20. AMITRIPTYLINE [Suspect]
     Active Substance: AMITRIPTYLINE
     Indication: Product used for unknown indication
     Dosage: 20 MG, QD
     Route: 065
  21. OLANZAPINE [Suspect]
     Active Substance: OLANZAPINE
     Indication: Product used for unknown indication
     Dosage: UNK
     Route: 065

REACTIONS (19)
  - Depressive symptom [Recovered/Resolved]
  - Sleep disorder [Recovered/Resolved]
  - Decreased appetite [Recovered/Resolved]
  - Negative thoughts [Recovered/Resolved]
  - Mental impairment [Recovered/Resolved]
  - Hyperhidrosis [Recovered/Resolved]
  - Depressed mood [Recovered/Resolved]
  - Hallucination, olfactory [Recovered/Resolved]
  - Hallucination, auditory [Recovered/Resolved]
  - Delusion [Recovered/Resolved]
  - Drug hypersensitivity [Recovered/Resolved]
  - Extrapyramidal disorder [Recovered/Resolved]
  - Urinary incontinence [Recovered/Resolved]
  - Hallucination [Recovered/Resolved]
  - Somatic symptom disorder of pregnancy [Recovered/Resolved]
  - Akathisia [Unknown]
  - Drug ineffective [Unknown]
  - Peripheral swelling [Unknown]
  - Euphoric mood [Unknown]
